FAERS Safety Report 4790769-9 (Version None)
Quarter: 2005Q3

REPORT INFORMATION
  Report Type: 
  Country: None (occurrence: None)
  Receive Date: 20050914
  Receipt Date: 20050629
  Transmission Date: 20060218
  Serious: Yes (Death)
  Sender: FDA-Public Use
  Company Number: 028-20785-05060428

PATIENT
  Age: 74 Year
  Sex: Female

DRUGS (10)
  1. THALOMID [Suspect]
     Indication: MULTIPLE MYELOMA
     Dosage: 200-400MG, DAILY, ORAL
     Route: 048
     Dates: start: 20041201, end: 20050601
  2. THALOMID [Suspect]
  3. PAMIDRONATE DISODIUM [Concomitant]
  4. ADALAT XL (NIFEDIPINE) [Concomitant]
  5. ALTACE [Concomitant]
  6. ACTOSE [Concomitant]
  7. GLUCONORM (GLIBENCLAMIDE) [Concomitant]
  8. INDAPAMIDE [Concomitant]
  9. METFORMIN (METFORMIN) [Concomitant]
  10. ACETYLSALICYLIC ACID SRT [Concomitant]

REACTIONS (1)
  - DEATH [None]
